FAERS Safety Report 25843720 (Version 2)
Quarter: 2025Q4

REPORT INFORMATION
  Report Type: Spontaneous
  Country: EU (occurrence: EU)
  Receive Date: 20250924
  Receipt Date: 20251006
  Transmission Date: 20260117
  Serious: Yes (Other)
  Sender: CELLTRION
  Company Number: EU-AMGEN-DEUSP2025174570

PATIENT

DRUGS (11)
  1. ADALIMUMAB [Suspect]
     Active Substance: ADALIMUMAB
     Indication: Pyoderma gangrenosum
     Dosage: UNK, 2 ADMINISTRATIONS (ADDITIONAL INFORMATION ON DRUG: DOSAGE1: UNIT=NOT AVAILABLE DOSAGE2: UNIT=NO
     Route: 065
  2. ADALIMUMAB [Suspect]
     Active Substance: ADALIMUMAB
     Indication: Off label use
     Dosage: UNK (THERAPY WAS RESUMED) (ADDITIONAL INFORMATION ON DRUG: DOSAGE1: UNIT=NOT AVAILABLE DOSAGE2: UNIT
     Route: 065
  3. USTEKINUMAB [Suspect]
     Active Substance: USTEKINUMAB
     Indication: Pyoderma gangrenosum
     Dosage: UNK (ADDITIONAL INFORMATION ON DRUG: DOSAGE1: UNIT=NOT AVAILABLE)
     Route: 065
  4. USTEKINUMAB [Suspect]
     Active Substance: USTEKINUMAB
     Indication: Off label use
  5. PREDNISONE [Suspect]
     Active Substance: PREDNISONE
     Indication: Product used for unknown indication
     Dosage: 250 MG
     Route: 042
  6. PREDNISONE [Suspect]
     Active Substance: PREDNISONE
     Dosage: 250 MG, PERIOD OF 3 DAYS
     Route: 042
  7. PREDNISONE [Suspect]
     Active Substance: PREDNISONE
     Dosage: REDUCED
  8. PREDNISOLONE [Concomitant]
     Active Substance: PREDNISOLONE
     Indication: Pyoderma gangrenosum
     Dosage: 250 MILLIGRAM
     Route: 042
  9. PREDNISOLONE [Concomitant]
     Active Substance: PREDNISOLONE
     Dosage: UNK, (GRADUALLY REDUCED OVER SEVERAL WEEKS)
     Route: 042
  10. PREDNISOLONE [Concomitant]
     Active Substance: PREDNISOLONE
     Dosage: 250 MILLIGRAM
     Route: 042
  11. IMMUNE GLOBULIN NOS [Concomitant]
     Active Substance: IMMUNE GLOBULIN NOS
     Indication: Pyoderma gangrenosum
     Dosage: 125 GRAM ( FOR 5 DAYS)
     Route: 042

REACTIONS (8)
  - Pyoderma gangrenosum [Recovering/Resolving]
  - Condition aggravated [Recovering/Resolving]
  - Lung abscess [Recovering/Resolving]
  - Bronchitis bacterial [Recovering/Resolving]
  - Treatment noncompliance [Unknown]
  - Drug ineffective for unapproved indication [Unknown]
  - Drug effective for unapproved indication [Unknown]
  - Off label use [Unknown]
